FAERS Safety Report 14843247 (Version 2)
Quarter: 2018Q2

REPORT INFORMATION
  Report Type: Spontaneous
  Country: US (occurrence: US)
  Receive Date: 20180503
  Receipt Date: 20180524
  Transmission Date: 20180711
  Serious: Yes (Death)
  Sender: FDA-Public Use
  Company Number: US-CELGENEUS-USA-20180500715

PATIENT
  Sex: Female
  Weight: 59.93 kg

DRUGS (4)
  1. ALOXI [Concomitant]
     Active Substance: PALONOSETRON HYDROCHLORIDE
     Indication: NAUSEA
     Dosage: .25 MILLIGRAM
     Route: 041
     Dates: start: 20180202
  2. ABRAXANE [Suspect]
     Active Substance: PACLITAXEL
     Dosage: 166 MILLIGRAM
     Route: 065
     Dates: start: 20180202, end: 20180302
  3. DECADRON [Concomitant]
     Active Substance: DEXAMETHASONE
     Indication: INFLAMMATION
     Dosage: 10 MILLIGRAM
     Route: 041
     Dates: start: 20180202
  4. ABRAXANE [Suspect]
     Active Substance: PACLITAXEL
     Indication: BREAST CANCER
     Dosage: 166 MILLIGRAM
     Route: 065
     Dates: start: 20180126

REACTIONS (1)
  - Breast cancer metastatic [Fatal]
